FAERS Safety Report 6611384-8 (Version None)
Quarter: 2010Q1

REPORT INFORMATION
  Report Type: 
  Country: None (occurrence: None)
  Receive Date: 20100303
  Receipt Date: 20100225
  Transmission Date: 20100710
  Serious: Yes (Death)
  Sender: FDA-Public Use
  Company Number: CA-CELGENEUS-028-21880-09100892

PATIENT
  Sex: Male

DRUGS (1)
  1. REVLIMID [Suspect]
     Indication: MULTIPLE MYELOMA
     Route: 048
     Dates: start: 20090902, end: 20100101

REACTIONS (4)
  - APHTHOUS STOMATITIS [None]
  - CHILLS [None]
  - DIZZINESS [None]
  - MULTIPLE MYELOMA [None]
